FAERS Safety Report 9237050 (Version 1)
Quarter: 2013Q2

REPORT INFORMATION
  Report Type: Spontaneous
  Country: US (occurrence: US)
  Receive Date: 20130417
  Receipt Date: 20130417
  Transmission Date: 20140414
  Serious: Yes (Other)
  Sender: FDA-Public Use
  Company Number: US-ASTRAZENECA-2013SE23004

PATIENT
  Age: 51 Year
  Sex: Female

DRUGS (4)
  1. BUPIVACAINE [Suspect]
     Route: 053
  2. BUPIVACAINE [Suspect]
     Route: 053
  3. KETOROLAC [Concomitant]
     Indication: ANALGESIC THERAPY
  4. OXYCONTIN [Concomitant]
     Indication: ANALGESIC THERAPY
     Route: 048

REACTIONS (1)
  - Neuralgic amyotrophy [Recovering/Resolving]
